FAERS Safety Report 17803195 (Version 1)
Quarter: 2020Q2

REPORT INFORMATION
  Report Type: Spontaneous
  Country: FR (occurrence: FR)
  Receive Date: 20200519
  Receipt Date: 20200519
  Transmission Date: 20200714
  Serious: Yes (Life-Threatening)
  Sender: FDA-Public Use
  Company Number: FR-TEVA-2020-FR-1235966

PATIENT
  Age: 70 Year
  Sex: Male
  Weight: 150 kg

DRUGS (12)
  1. BISOPROLOL SANDOZ 10 MG, COMPRIME PELLICULE [Suspect]
     Active Substance: BISOPROLOL FUMARATE
     Indication: HYPERTENSION
     Dosage: 10 MG
     Route: 048
     Dates: end: 20200401
  2. MOXONIDINE MYLAN 0,4 MG, COMPRIME PELLICULE [Suspect]
     Active Substance: MOXONIDINE
     Indication: HYPERTENSION
     Route: 048
     Dates: end: 20200404
  3. ADENURIC 80 MG, COMPRIME PELLICULE [Suspect]
     Active Substance: FEBUXOSTAT
     Indication: GOUT
     Dosage: 80 MG
     Route: 048
     Dates: end: 20200404
  4. ESIDREX [Suspect]
     Active Substance: HYDROCHLOROTHIAZIDE
     Indication: HYPERTENSION
     Dosage: 12.5 MG
     Route: 048
     Dates: end: 20200401
  5. PRAVASTATINE SODIQUE [Suspect]
     Active Substance: PRAVASTATIN SODIUM
     Indication: DYSLIPIDAEMIA
     Route: 048
     Dates: end: 20200331
  6. EUPRESSYL [Suspect]
     Active Substance: URAPIDIL
     Indication: HYPERTENSION
     Route: 048
     Dates: end: 20200404
  7. LERCANIDIPINE ARROW [Suspect]
     Active Substance: LERCANIDIPINE
     Indication: HYPERTENSION
     Dosage: 20 MG
     Route: 048
     Dates: end: 20200404
  8. CORDARONE [Suspect]
     Active Substance: AMIODARONE HYDROCHLORIDE
     Indication: ATRIAL FIBRILLATION
     Dosage: 1 / D 5D / 7,1000 MG
     Route: 048
     Dates: end: 20200331
  9. PANTOPRAZOLE [Concomitant]
     Active Substance: PANTOPRAZOLE
  10. CANDESARTAN SANDOZ 32 MG, COMPRIME SECABLE [Suspect]
     Active Substance: CANDESARTAN CILEXETIL
     Indication: HYPERTENSION
     Dosage: 32 MG
     Route: 048
     Dates: end: 20200401
  11. PREVISCAN [Concomitant]
  12. SPASFON [PHLOROGLUCINOL;TRIMETHYLPHLOROGLUCINOL] [Concomitant]
     Active Substance: PHLOROGLUCINOL\1,3,5-TRIMETHOXYBENZENE

REACTIONS (3)
  - Electrocardiogram QT prolonged [Recovering/Resolving]
  - Bradycardia [Recovered/Resolved]
  - Hypotension [Recovered/Resolved]

NARRATIVE: CASE EVENT DATE: 20200331
